FAERS Safety Report 7380111-1 (Version None)
Quarter: 2011Q1

REPORT INFORMATION
  Report Type: 
  Country: None (occurrence: None)
  Receive Date: 20110329
  Receipt Date: 20100419
  Transmission Date: 20110831
  Serious: No
  Sender: FDA-Public Use
  Company Number: US-MYLANLABS-2010S1006911

PATIENT
  Age: 65 Year
  Sex: Female

DRUGS (3)
  1. ESTRADIOL [Suspect]
     Indication: HORMONE REPLACEMENT THERAPY
     Dosage: QW
     Route: 062
     Dates: start: 20090101, end: 20090101
  2. LEVOTHYROXINE [Concomitant]
     Indication: HYPOTHYROIDISM
     Route: 048
  3. ESTRADIOL [Suspect]
     Dosage: QW
     Route: 062
     Dates: start: 20100101, end: 20100301

REACTIONS (2)
  - APPLICATION SITE URTICARIA [None]
  - APPLICATION SITE RASH [None]
